FAERS Safety Report 6293343-0 (Version None)
Quarter: 2009Q3

REPORT INFORMATION
  Report Type: 
  Country: None (occurrence: None)
  Receive Date: 20090731
  Receipt Date: 20090723
  Transmission Date: 20100115
  Serious: Yes (Hospitalization)
  Sender: FDA-Public Use
  Company Number: PHHO2009US06228

PATIENT
  Sex: Male

DRUGS (19)
  1. BLINDED ALISKIREN ALI+TAB+CVR [Suspect]
     Indication: CARDIOVASCULAR DISORDER
     Dosage: CODE NOT BROKEN
     Route: 048
     Dates: start: 20080220, end: 20090517
  2. BLINDED NO TREATMENT RECEIVED NOMED [Suspect]
     Indication: CARDIOVASCULAR DISORDER
     Dosage: CODE NOT BROKEN
     Route: 048
     Dates: start: 20080220, end: 20090517
  3. BLINDED PLACEBO COMP-PLA+ [Suspect]
     Indication: CARDIOVASCULAR DISORDER
     Dosage: CODE NOT BROKEN
     Route: 048
     Dates: start: 20080220, end: 20090517
  4. BLINDED ALISKIREN ALI+TAB+CVR [Suspect]
     Dosage: CODE NOT BROKEN
     Route: 048
     Dates: start: 20090519
  5. BLINDED NO TREATMENT RECEIVED NOMED [Suspect]
     Dosage: CODE NOT BROKEN
     Route: 048
     Dates: start: 20090519
  6. BLINDED PLACEBO COMP-PLA+ [Suspect]
     Dosage: CODE NOT BROKEN
     Route: 048
     Dates: start: 20090519
  7. DIOVAN [Suspect]
  8. NORVASC [Suspect]
  9. ALLOPURINOL [Concomitant]
  10. ASPIRIN [Concomitant]
  11. ALLEGRA [Concomitant]
  12. MIRAPEX [Concomitant]
  13. NITROGLYCERIN [Concomitant]
  14. LEVOTHYROXINE SODIUM [Concomitant]
  15. OMEPRAZOLE [Concomitant]
  16. PROVIGIL [Concomitant]
  17. COUMADIN [Concomitant]
  18. LANTUS [Concomitant]
  19. GLIMEPIRIDE [Concomitant]

REACTIONS (6)
  - ANAEMIA [None]
  - DIZZINESS [None]
  - HYPERKALAEMIA [None]
  - HYPOTENSION [None]
  - HYPOVOLAEMIA [None]
  - VENTRICULAR EXTRASYSTOLES [None]
